FAERS Safety Report 15942878 (Version 1)
Quarter: 2019Q1

REPORT INFORMATION
  Report Type: Spontaneous
  Country: US (occurrence: US)
  Receive Date: 20190209
  Receipt Date: 20190209
  Transmission Date: 20190417
  Serious: No
  Sender: FDA-Public Use
  Company Number: US-009507513-1901USA011726

PATIENT
  Sex: Female

DRUGS (11)
  1. IBRANCE [Suspect]
     Active Substance: PALBOCICLIB
     Indication: BREAST CANCER STAGE IV
     Dosage: 75 MILLIGRAM, QD (ONCE AT NIGHT FOR 21 DAYS THEN OFF 7 DAYS)
     Route: 048
     Dates: start: 2016
  2. FEMARA [Suspect]
     Active Substance: LETROZOLE
     Indication: BREAST CANCER STAGE IV
     Dosage: 25 MILLIGRAM EVERY DAY
     Route: 048
     Dates: start: 2016
  3. FEMARA [Suspect]
     Active Substance: LETROZOLE
     Indication: METASTASES TO LUNG
  4. ZOCOR [Concomitant]
     Active Substance: SIMVASTATIN
     Indication: BLOOD CHOLESTEROL
     Dosage: 20 MG, QD (IN THE EVENING)
  5. FOSAMAX [Suspect]
     Active Substance: ALENDRONATE SODIUM
     Indication: BONE DENSITY DECREASED
     Dosage: UNK
     Route: 048
     Dates: start: 20170927
  6. FOSAMAX [Suspect]
     Active Substance: ALENDRONATE SODIUM
     Indication: OSTEOPOROSIS
  7. IBRANCE [Suspect]
     Active Substance: PALBOCICLIB
     Indication: METASTASES TO LYMPH NODES
  8. IBRANCE [Suspect]
     Active Substance: PALBOCICLIB
     Indication: METASTASES TO LUNG
  9. FEMARA [Suspect]
     Active Substance: LETROZOLE
     Indication: METASTASES TO LYMPH NODES
  10. SERTRALINE HYDROCHLORIDE. [Concomitant]
     Active Substance: SERTRALINE HYDROCHLORIDE
     Indication: DEPRESSION
     Dosage: UNK
  11. LORAZEPAM. [Concomitant]
     Active Substance: LORAZEPAM
     Indication: ANXIETY
     Dosage: 1 MG-2MG AS NEEDED IN THE EVENING

REACTIONS (4)
  - Pain [Not Recovered/Not Resolved]
  - Contraindicated product administered [Unknown]
  - Nausea [Recovered/Resolved]
  - Anaemia [Not Recovered/Not Resolved]

NARRATIVE: CASE EVENT DATE: 2016
